FAERS Safety Report 10786012 (Version 1)
Quarter: 2015Q1

REPORT INFORMATION
  Report Type: Spontaneous
  Country: US (occurrence: US)
  Receive Date: 20150211
  Receipt Date: 20150211
  Transmission Date: 20150721
  Serious: No
  Sender: FDA-Public Use
  Company Number: US-MYLANLABS-2014M1009964

PATIENT
  Age: 24 Year
  Sex: Female
  Weight: 95.24 kg

DRUGS (1)
  1. XULANE [Suspect]
     Active Substance: ETHINYL ESTRADIOL\NORELGESTROMIN
     Indication: CONTRACEPTION
     Dosage: 150/35 ?G/DAY, CHANGED QW X3, 1 W OFF
     Route: 062
     Dates: start: 201404, end: 201405

REACTIONS (3)
  - Mood swings [Recovered/Resolved]
  - Breast tenderness [Recovered/Resolved]
  - Constipation [Recovered/Resolved]

NARRATIVE: CASE EVENT DATE: 201405
